FAERS Safety Report 7910559-5 (Version None)
Quarter: 2011Q4

REPORT INFORMATION
  Report Type: 
  Country: None (occurrence: None)
  Receive Date: 20111111
  Receipt Date: 20111104
  Transmission Date: 20120403
  Serious: Yes (Other)
  Sender: FDA-Public Use
  Company Number: PHFR2011GB03251

PATIENT
  Sex: Female

DRUGS (7)
  1. LANSOPRAZOLE [Concomitant]
     Dosage: 30 MG, QD
     Route: 048
     Dates: start: 20110217
  2. CITALOPRAM HYDROBROMIDE [Concomitant]
     Dosage: 20 MG, QD
     Route: 048
  3. CLOZARIL [Suspect]
     Indication: SCHIZOPHRENIA
     Dosage: 12.5 MG, QMO
     Route: 048
     Dates: start: 20110209
  4. AMOROLFINE [Concomitant]
     Dates: start: 20110321
  5. CLOZARIL [Suspect]
     Indication: SCHIZOAFFECTIVE DISORDER
     Dosage: 62.5 MG, QD
     Route: 048
  6. CAVILON [Concomitant]
     Route: 061
  7. FORTISIP [Concomitant]
     Route: 048

REACTIONS (6)
  - NEUROLEPTIC MALIGNANT SYNDROME [None]
  - TACHYCARDIA [None]
  - INCONTINENCE [None]
  - MUSCLE RIGIDITY [None]
  - FLUSHING [None]
  - HYPERTENSION [None]
